FAERS Safety Report 8421001-2 (Version None)
Quarter: 2012Q2

REPORT INFORMATION
  Report Type: 
  Country: None (occurrence: None)
  Receive Date: 20120608
  Receipt Date: 20120530
  Transmission Date: 20120825
  Serious: Yes (Hospitalization, Other)
  Sender: FDA-Public Use
  Company Number: JP-VERTEX PHARMACEUTICALS INC.-AE-2012-002913

PATIENT
  Age: 57 Year
  Sex: Male

DRUGS (9)
  1. MUCOSTA [Concomitant]
     Route: 048
     Dates: start: 20120218
  2. TELAVIC (TELAPREVIR) [Suspect]
     Indication: HEPATITIS C
     Route: 048
     Dates: start: 20120217, end: 20120227
  3. PEG-INTRON [Concomitant]
     Indication: HEPATITIS C
     Route: 051
     Dates: start: 20120217, end: 20120223
  4. ATELEC [Concomitant]
     Route: 048
  5. LOXONIN [Concomitant]
     Route: 048
     Dates: start: 20120217, end: 20120217
  6. RIBAVIRIN [Concomitant]
     Indication: HEPATITIS C
     Route: 048
     Dates: start: 20120217, end: 20120227
  7. PEG-INTRON [Concomitant]
     Route: 051
     Dates: start: 20120224, end: 20120227
  8. GLYCYRON [Concomitant]
     Route: 048
  9. CANDESARTAN CILEXETIL [Concomitant]
     Route: 048

REACTIONS (9)
  - THROMBOCYTOPENIA [None]
  - PERIVASCULAR DERMATITIS [None]
  - RENAL IMPAIRMENT [None]
  - PRURITUS [None]
  - PURPURA [None]
  - DRUG ERUPTION [None]
  - DECREASED APPETITE [None]
  - PRERENAL FAILURE [None]
  - ASTHENIA [None]
